FAERS Safety Report 7030727-7 (Version None)
Quarter: 2010Q4

REPORT INFORMATION
  Report Type: 
  Country: None (occurrence: None)
  Receive Date: 20101006
  Receipt Date: 20100930
  Transmission Date: 20110411
  Serious: Yes (Death)
  Sender: FDA-Public Use
  Company Number: US-CELGENEUS-163-21880-10090713

PATIENT
  Sex: Male

DRUGS (4)
  1. REVLIMID [Suspect]
     Indication: MULTIPLE MYELOMA
     Dosage: 20-10MG
     Route: 048
     Dates: start: 20070501
  2. REVLIMID [Suspect]
     Route: 048
     Dates: start: 20071201, end: 20090124
  3. REVLIMID [Suspect]
     Route: 048
     Dates: start: 20090803
  4. REVLIMID [Suspect]
     Route: 048
     Dates: start: 20100501

REACTIONS (1)
  - MULTIPLE MYELOMA [None]
